APPROVED DRUG PRODUCT: LEVETIRACETAM
Active Ingredient: LEVETIRACETAM
Strength: 750MG
Dosage Form/Route: TABLET, EXTENDED RELEASE;ORAL
Application: A203468 | Product #002 | TE Code: AB
Applicant: PRINSTON PHARMACEUTICAL INC
Approved: May 21, 2015 | RLD: No | RS: No | Type: RX